FAERS Safety Report 15377945 (Version 1)
Quarter: 2018Q3

REPORT INFORMATION
  Report Type: Spontaneous
  Country: JP (occurrence: JP)
  Receive Date: 20180913
  Receipt Date: 20180913
  Transmission Date: 20181010
  Serious: Yes (Hospitalization, Other)
  Sender: FDA-Public Use
  Company Number: JP-MYLANLABS-2018M1066873

PATIENT
  Age: 40 Year
  Sex: Female

DRUGS (2)
  1. PREDNISOLONE. [Suspect]
     Active Substance: PREDNISOLONE
     Dosage: SOLUBLE PREDNISOLONE
     Route: 048
  2. PREDNISOLONE. [Suspect]
     Active Substance: PREDNISOLONE
     Indication: SYSTEMIC LUPUS ERYTHEMATOSUS
     Route: 048

REACTIONS (9)
  - Urinary tract infection pseudomonal [Recovered/Resolved]
  - Pyuria [Unknown]
  - Herpes zoster [Unknown]
  - Neurogenic bladder [Recovered/Resolved]
  - Systemic inflammatory response syndrome [Unknown]
  - Pyelonephritis [Unknown]
  - Septic shock [Recovered/Resolved]
  - Dysuria [Unknown]
  - Viral myelitis [Unknown]

NARRATIVE: CASE EVENT DATE: 2013
